FAERS Safety Report 10182439 (Version 1)
Quarter: 2014Q2

REPORT INFORMATION
  Report Type: Spontaneous
  Country: US (occurrence: None)
  Receive Date: 20140519
  Receipt Date: 20140519
  Transmission Date: 20141212
  Serious: No
  Sender: FDA-Public Use
  Company Number: None

PATIENT
  Age: 41 Year
  Sex: Male
  Weight: 111.13 kg

DRUGS (2)
  1. INDOMETHACIN [Suspect]
     Indication: GOUT
     Route: 048
     Dates: start: 20140515, end: 20140515
  2. INDOMETHACIN [Suspect]
     Indication: TENDONITIS
     Route: 048
     Dates: start: 20140515, end: 20140515

REACTIONS (3)
  - Product quality issue [None]
  - Product measured potency issue [None]
  - Drug ineffective [None]
